FAERS Safety Report 21850407 (Version 1)
Quarter: 2023Q1

REPORT INFORMATION
  Report Type: Spontaneous
  Country: None (occurrence: CA)
  Receive Date: 20230111
  Receipt Date: 20230111
  Transmission Date: 20230417
  Serious: Yes (Other)
  Sender: FDA-Public Use
  Company Number: CA-B.Braun Medical Inc.-2136606

PATIENT
  Age: 65 Year
  Sex: Female
  Weight: 34 kg

DRUGS (19)
  1. DEXTROSE MONOHYDRATE\THEOPHYLLINE\THEOPHYLLINE ANHYDROUS [Suspect]
     Active Substance: DEXTROSE MONOHYDRATE\THEOPHYLLINE\THEOPHYLLINE ANHYDROUS
  2. ASPIRIN [Suspect]
     Active Substance: ASPIRIN
  3. ADVAIR DISKUS [Suspect]
     Active Substance: FLUTICASONE PROPIONATE\SALMETEROL XINAFOATE
  4. AMLODIPINE BESYLATE [Suspect]
     Active Substance: AMLODIPINE BESYLATE
  5. BECLOMETHASONE [Suspect]
     Active Substance: BECLOMETHASONE
  6. CALCIUM [Suspect]
     Active Substance: CALCIUM
  7. CIPROFLOXACIN HYDROCHLORIDE [Suspect]
     Active Substance: CIPROFLOXACIN HYDROCHLORIDE
  8. CLONAZEPAM [Suspect]
     Active Substance: CLONAZEPAM
  9. ROPIVACAINE HYDROCHLORIDE [Suspect]
     Active Substance: ROPIVACAINE HYDROCHLORIDE
  10. FOLIC ACID [Suspect]
     Active Substance: FOLIC ACID
  11. MOXIFLOXACIN HYDROCHLORIDE [Suspect]
     Active Substance: MOXIFLOXACIN HYDROCHLORIDE
  12. OMALIZUMAB [Suspect]
     Active Substance: OMALIZUMAB
  13. PREDNISONE [Suspect]
     Active Substance: PREDNISONE
  14. RISEDRONATE SODIUM [Suspect]
     Active Substance: RISEDRONATE SODIUM
  15. ROSUVASTATIN CALCIUM [Suspect]
     Active Substance: ROSUVASTATIN CALCIUM
  16. SINGULAIR [Suspect]
     Active Substance: MONTELUKAST SODIUM
  17. VITAMIN D [Suspect]
     Active Substance: VITAMIN D NOS
  18. CEFADROXIL MONOHYDRATE [Concomitant]
     Active Substance: CEFADROXIL
  19. HYDROMORPHONE [Suspect]
     Active Substance: HYDROMORPHONE

REACTIONS (9)
  - Cough [Unknown]
  - Drug hypersensitivity [Unknown]
  - Dyspnoea [Unknown]
  - Oedema [Unknown]
  - Pain [Unknown]
  - Vomiting [Unknown]
  - Pneumonia [Unknown]
  - Malaise [Unknown]
  - Wheezing [Unknown]
